FAERS Safety Report 18985635 (Version 2)
Quarter: 2021Q1

REPORT INFORMATION
  Report Type: Spontaneous
  Country: IT (occurrence: IT)
  Receive Date: 20210309
  Receipt Date: 20210325
  Transmission Date: 20210420
  Serious: Yes (Life-Threatening)
  Sender: FDA-Public Use
  Company Number: IT-ASTRAZENECA-2021A104539

PATIENT
  Age: 20 Year
  Sex: Female

DRUGS (6)
  1. DICLOFENAC ALFASIGMA [Suspect]
     Active Substance: DICLOFENAC SODIUM
     Indication: DRUG ABUSE
     Dosage: 10.0DF ONCE/SINGLE ADMINISTRATION
     Route: 048
  2. QUETIAPINE FUMARATE. [Suspect]
     Active Substance: QUETIAPINE FUMARATE
     Indication: DRUG ABUSE
     Dosage: 150.0MG ONCE/SINGLE ADMINISTRATION
     Route: 048
  3. PARACETAMOL [Suspect]
     Active Substance: ACETAMINOPHEN
     Indication: DRUG ABUSE
     Dosage: 20.0DF ONCE/SINGLE ADMINISTRATION
     Route: 048
  4. ZOLPIDEM [Suspect]
     Active Substance: ZOLPIDEM TARTRATE
     Indication: DRUG ABUSE
     Dosage: 28.0DF ONCE/SINGLE ADMINISTRATION
     Route: 048
  5. ESCITALOPRAM OXALATE. [Suspect]
     Active Substance: ESCITALOPRAM OXALATE
     Indication: DRUG ABUSE
     Dosage: 1.0DF ONCE/SINGLE ADMINISTRATION
     Route: 048
  6. QUETIAPINE FUMARATE. [Suspect]
     Active Substance: QUETIAPINE FUMARATE
     Indication: DRUG ABUSE
     Dosage: QUETIAPINA28.0DF ONCE/SINGLE ADMINISTRATION
     Route: 048

REACTIONS (4)
  - Sinus tachycardia [Unknown]
  - Lactic acidosis [Unknown]
  - Loss of consciousness [Unknown]
  - Drug abuse [Unknown]

NARRATIVE: CASE EVENT DATE: 20210115
